FAERS Safety Report 8598391-3 (Version None)
Quarter: 2012Q3

REPORT INFORMATION
  Report Type: 
  Country: None (occurrence: None)
  Receive Date: 20120816
  Receipt Date: 20120810
  Transmission Date: 20120928
  Serious: Yes (Hospitalization, Other)
  Sender: FDA-Public Use
  Company Number: AU-JNJFOC-20120406761

PATIENT
  Sex: Female

DRUGS (17)
  1. ACETAMINOPHEN [Concomitant]
     Route: 065
  2. CALCIUM CARBONATE [Concomitant]
     Route: 065
  3. STELARA [Suspect]
     Route: 058
     Dates: start: 20120306
  4. ZESTRIL [Concomitant]
     Route: 065
  5. STELARA [Suspect]
     Indication: PSORIASIS
     Route: 058
     Dates: start: 20100528
  6. STELARA [Suspect]
     Route: 058
     Dates: start: 20120528
  7. ALL OTHER THERAPEUTIC DRUGS [Concomitant]
     Route: 065
  8. AVAPRO [Concomitant]
     Route: 065
  9. NAPROXEN [Concomitant]
     Route: 065
  10. STELARA [Suspect]
     Route: 058
     Dates: start: 20110310
  11. STELARA [Suspect]
     Route: 058
     Dates: start: 20111213
  12. URO-CARB [Concomitant]
     Route: 065
  13. METFORMIN HCL [Concomitant]
     Route: 065
  14. INSULIN [Concomitant]
     Route: 065
  15. STELARA [Suspect]
     Route: 058
     Dates: start: 20101207
  16. STELARA [Suspect]
     Route: 058
     Dates: start: 20110906
  17. EFFEXOR [Concomitant]
     Route: 065

REACTIONS (4)
  - ARTHROSCOPY [None]
  - PSORIASIS [None]
  - ANAEMIA [None]
  - KNEE ARTHROPLASTY [None]
